FAERS Safety Report 8586064-2 (Version None)
Quarter: 2012Q3

REPORT INFORMATION
  Report Type: 
  Country: None (occurrence: None)
  Receive Date: 20120810
  Receipt Date: 20120731
  Transmission Date: 20120928
  Serious: Yes (Death, Hospitalization)
  Sender: FDA-Public Use
  Company Number: FR-ROCHE-1095749

PATIENT
  Sex: Male

DRUGS (8)
  1. DOCETAXEL [Concomitant]
     Indication: CHEMOTHERAPY
     Route: 042
     Dates: start: 20120502, end: 20120502
  2. DEXAMETHASONE [Concomitant]
     Route: 042
     Dates: start: 20120502, end: 20120504
  3. ONDANSETRON [Concomitant]
     Route: 042
     Dates: start: 20120502, end: 20120504
  4. APREPITANT [Concomitant]
  5. GRANOCYTE [Concomitant]
     Indication: NEUTROPENIA
     Route: 042
     Dates: start: 20120505, end: 20120507
  6. LENOGRASTIM [Concomitant]
     Dates: start: 20120505
  7. CISPLATIN [Concomitant]
     Indication: CHEMOTHERAPY
     Route: 042
     Dates: start: 20120502, end: 20120504
  8. AVASTIN [Suspect]
     Indication: CHEMOTHERAPY
     Route: 042
     Dates: start: 20120502, end: 20120502

REACTIONS (2)
  - GASTRIC HAEMORRHAGE [None]
  - GASTRIC ULCER [None]
